FAERS Safety Report 21369596 (Version 7)
Quarter: 2023Q1

REPORT INFORMATION
  Report Type: Report from Study
  Country: MX (occurrence: MX)
  Receive Date: 20220923
  Receipt Date: 20230111
  Transmission Date: 20230417
  Serious: Yes (Other)
  Sender: FDA-Public Use
  Company Number: MX-NOVARTISPH-NVSC2022MX215049

PATIENT
  Age: 50 Year
  Sex: Female

DRUGS (2)
  1. KISQALI [Suspect]
     Active Substance: RIBOCICLIB
     Indication: Breast cancer
     Dosage: UNK (TREATMENT STOP DATE AS CONTINUES)
     Route: 048
     Dates: start: 20220721
  2. ENSURE [Concomitant]
     Active Substance: AMINO ACIDS\DEXTROSE\ELECTROLYTES NOS\SOYBEAN OIL\VITAMINS
     Indication: Product used for unknown indication
     Dosage: UNK
     Route: 065

REACTIONS (30)
  - Pulmonary oedema [Unknown]
  - Pulmonary pain [Unknown]
  - Bone cancer [Unknown]
  - Second primary malignancy [Unknown]
  - Swelling face [Unknown]
  - Somnolence [Unknown]
  - Anxiety [Recovering/Resolving]
  - Feeling of despair [Unknown]
  - Pleural effusion [Unknown]
  - Pruritus [Recovered/Resolved]
  - Pain [Recovering/Resolving]
  - Depression [Unknown]
  - Crying [Recovered/Resolved]
  - Weight decreased [Unknown]
  - Eating disorder [Unknown]
  - Discomfort [Recovering/Resolving]
  - Malaise [Unknown]
  - Oropharyngeal pain [Unknown]
  - Bone pain [Unknown]
  - Epigastric discomfort [Unknown]
  - Pain in extremity [Unknown]
  - Oropharyngeal discomfort [Unknown]
  - Dysstasia [Unknown]
  - Fatigue [Recovering/Resolving]
  - Decreased appetite [Unknown]
  - Cough [Unknown]
  - Nausea [Unknown]
  - Vomiting [Unknown]
  - Asthenia [Unknown]
  - Throat irritation [Unknown]

NARRATIVE: CASE EVENT DATE: 20221101
